FAERS Safety Report 13270387 (Version 1)
Quarter: 2017Q1

REPORT INFORMATION
  Report Type: Spontaneous
  Country: CN (occurrence: CN)
  Receive Date: 20170224
  Receipt Date: 20170224
  Transmission Date: 20170428
  Serious: Yes (Hospitalization)
  Sender: FDA-Public Use
  Company Number: CN-B.I. PHARMACEUTICALS,INC./RIDGEFIELD-2017-BI-009461

PATIENT
  Sex: Female

DRUGS (1)
  1. PRADAXA [Suspect]
     Active Substance: DABIGATRAN ETEXILATE MESYLATE
     Indication: CEREBRAL INFARCTION
     Route: 065

REACTIONS (5)
  - Hypoaesthesia [Unknown]
  - Haematochezia [Recovering/Resolving]
  - Anal haemorrhage [Recovered/Resolved]
  - Fall [Unknown]
  - Haemorrhage [Recovering/Resolving]
